FAERS Safety Report 18058939 (Version 4)
Quarter: 2020Q3

REPORT INFORMATION
  Report Type: Spontaneous
  Country: BR (occurrence: BR)
  Receive Date: 20200723
  Receipt Date: 20200903
  Transmission Date: 20201103
  Serious: Yes (Hospitalization, Other)
  Sender: FDA-Public Use
  Company Number: BR-ROCHE-2638645

PATIENT
  Age: 62 Year
  Sex: Male
  Weight: 84 kg

DRUGS (13)
  1. RIVOTRIL [Suspect]
     Active Substance: CLONAZEPAM
     Indication: ANXIETY
     Route: 065
  2. ZINC. [Concomitant]
     Active Substance: ZINC
     Dosage: 1 TABLET IN EMPTY STOMACH
  3. OMEPRAZOLE. [Concomitant]
     Active Substance: OMEPRAZOLE
  4. FAULDOXO [Suspect]
     Active Substance: DOXORUBICIN HYDROCHLORIDE
     Indication: NON-HODGKIN^S LYMPHOMA
     Route: 042
     Dates: start: 20200707
  5. GENUXAL [Suspect]
     Active Substance: CYCLOPHOSPHAMIDE
     Indication: NON-HODGKIN^S LYMPHOMA
     Route: 042
     Dates: start: 20200707
  6. LONQUEX [Concomitant]
     Active Substance: LIPEGFILGRASTIM
     Route: 058
  7. MABTHERA [Suspect]
     Active Substance: RITUXIMAB
     Indication: NON-HODGKIN^S LYMPHOMA
     Route: 042
     Dates: start: 20200707
  8. RIVOTRIL [Suspect]
     Active Substance: CLONAZEPAM
     Indication: AGITATION
  9. ALLOPURINOL. [Concomitant]
     Active Substance: ALLOPURINOL
  10. BACTRIM [Concomitant]
     Active Substance: SULFAMETHOXAZOLE\TRIMETHOPRIM
     Dosage: EVERY 12H IN EVERY MONDAY, WEDNESDAY AND FRIDAY
  11. ACICLOVIR [Concomitant]
     Active Substance: ACYCLOVIR
  12. FAULDVINCRI [Suspect]
     Active Substance: VINCRISTINE SULFATE
     Indication: NON-HODGKIN^S LYMPHOMA
     Route: 042
     Dates: start: 20200707
  13. IVERMECTIN. [Concomitant]
     Active Substance: IVERMECTIN
     Dosage: 3 TABLETS PRE AND POST TREATMENT (UNSPECIFIED)

REACTIONS (9)
  - Agranulocytosis [Not Recovered/Not Resolved]
  - Tremor [Recovered/Resolved]
  - White blood cell count decreased [Unknown]
  - Malaise [Recovered/Resolved]
  - Anxiety [Recovered/Resolved]
  - Neutropenia [Not Recovered/Not Resolved]
  - Nausea [Recovered/Resolved]
  - Agitation [Recovered/Resolved]
  - Feeling cold [Recovered/Resolved]

NARRATIVE: CASE EVENT DATE: 20200716
